FAERS Safety Report 9890916 (Version 1)
Quarter: 2014Q1

REPORT INFORMATION
  Report Type: Spontaneous
  Country: US (occurrence: None)
  Receive Date: 20140207
  Receipt Date: 20140207
  Transmission Date: 20141002
  Serious: Yes (Death)
  Sender: FDA-Public Use
  Company Number: UTC-044043

PATIENT
  Age: 76 Year
  Sex: Female
  Weight: 50 kg

DRUGS (3)
  1. TYVASO [Suspect]
     Indication: COR PULMONALE CHRONIC
     Dosage: 18-54 MCG 4 IN 1 D
     Route: 048
     Dates: start: 20091013
  2. LETAIRIS (AMBRISENTAN) (UNKNOWN) [Concomitant]
  3. REVATIO (SILDENAFIL CITRATE)(UNKNOWN) [Concomitant]

REACTIONS (1)
  - Death [None]
